FAERS Safety Report 18969701 (Version 3)
Quarter: 2021Q4

REPORT INFORMATION
  Report Type: Spontaneous
  Country: US (occurrence: None)
  Receive Date: 20210304
  Receipt Date: 20211119
  Transmission Date: 20220303
  Serious: Yes (Death, Other)
  Sender: FDA-Public Use
  Company Number: 2021A096362

PATIENT
  Age: 87 Year
  Sex: Female

DRUGS (50)
  1. NEXIUM [Suspect]
     Active Substance: ESOMEPRAZOLE MAGNESIUM
     Indication: Gastrooesophageal reflux disease
     Route: 048
  2. NEXIUM [Suspect]
     Active Substance: ESOMEPRAZOLE MAGNESIUM
     Indication: Gastrooesophageal reflux disease
     Route: 048
  3. PRILOSEC [Suspect]
     Active Substance: OMEPRAZOLE MAGNESIUM
     Indication: Gastrooesophageal reflux disease
     Dosage: 20.0MG UNKNOWN
     Route: 048
     Dates: start: 2001
  4. PRILOSEC [Suspect]
     Active Substance: OMEPRAZOLE MAGNESIUM
     Indication: Gastrooesophageal reflux disease
     Dosage: 20.0MG UNKNOWN
     Route: 048
     Dates: start: 2001
  5. PREVACID [Suspect]
     Active Substance: LANSOPRAZOLE
     Indication: Gastrooesophageal reflux disease
     Dosage: 30.0MG UNKNOWN
     Route: 065
     Dates: start: 2004, end: 2014
  6. PREVACID [Suspect]
     Active Substance: LANSOPRAZOLE
     Indication: Gastrooesophageal reflux disease
     Dosage: 30.0MG UNKNOWN
     Route: 065
     Dates: start: 2004, end: 2014
  7. PROTONIX [Suspect]
     Active Substance: PANTOPRAZOLE SODIUM
     Indication: Gastrooesophageal reflux disease
     Dosage: 40.0MG UNKNOWN
     Route: 065
     Dates: start: 2004
  8. PROTONIX [Suspect]
     Active Substance: PANTOPRAZOLE SODIUM
     Indication: Gastrooesophageal reflux disease
     Dosage: 40.0MG UNKNOWN
     Route: 065
     Dates: start: 2004
  9. PENICILLIN [Concomitant]
     Active Substance: PENICILLIN
  10. CODEINE [Concomitant]
     Active Substance: CODEINE
  11. CELEBREX [Concomitant]
     Active Substance: CELECOXIB
  12. VENTOLIN [Concomitant]
     Active Substance: ALBUTEROL SULFATE
  13. LACTULOSE [Concomitant]
     Active Substance: LACTULOSE
  14. LORADAMED [Concomitant]
  15. RAMIPRIL [Concomitant]
     Active Substance: RAMIPRIL
  16. REMERON [Concomitant]
     Active Substance: MIRTAZAPINE
  17. ASPIRIN [Concomitant]
     Active Substance: ASPIRIN
  18. LIPITOR [Concomitant]
     Active Substance: ATORVASTATIN CALCIUM
     Indication: Hyperlipidaemia
  19. DEMADEX [Concomitant]
     Active Substance: TORSEMIDE
  20. METOPROLOL [Concomitant]
     Active Substance: METOPROLOL
  21. HYDRALAZINE HYDROCHLORIDE [Concomitant]
     Active Substance: HYDRALAZINE HYDROCHLORIDE
  22. ALLEGRA [Concomitant]
     Active Substance: FEXOFENADINE HYDROCHLORIDE
  23. VITAMIN B12 [Concomitant]
     Active Substance: CYANOCOBALAMIN
  24. TESSALON [Concomitant]
     Active Substance: BENZONATATE
  25. POTASSIUM CHLORIDE [Concomitant]
     Active Substance: POTASSIUM CHLORIDE
  26. RESTORIL [Concomitant]
     Active Substance: TEMAZEPAM
  27. METHYLPREDNISOLONE [Concomitant]
     Active Substance: METHYLPREDNISOLONE
  28. DEXTROMETHORPHAN HYDROBROMIDE/PHENYLEPHRINE HYDROCHLORIDE/AMMONIUM CHL [Concomitant]
  29. LOTRISONE [Concomitant]
     Active Substance: BETAMETHASONE DIPROPIONATE\CLOTRIMAZOLE
  30. NYSTATIN [Concomitant]
     Active Substance: NYSTATIN
  31. DIFLUCAN [Concomitant]
     Active Substance: FLUCONAZOLE
  32. NITROGLYCERIN [Concomitant]
     Active Substance: NITROGLYCERIN
  33. PREDNISONE [Concomitant]
     Active Substance: PREDNISONE
  34. ZYRTEC [Concomitant]
     Active Substance: CETIRIZINE HYDROCHLORIDE
  35. MELATONIN [Concomitant]
     Active Substance: MELATONIN
  36. MACROBID [Concomitant]
     Active Substance: NITROFURANTOIN\NITROFURANTOIN MONOHYDRATE
  37. TRIAMCINOLONE ACETONIDE [Concomitant]
     Active Substance: TRIAMCINOLONE ACETONIDE
  38. MAGNESIUM OXIDE [Concomitant]
     Active Substance: MAGNESIUM OXIDE
  39. ZINC OXIDE [Concomitant]
     Active Substance: ZINC OXIDE
  40. ACETAMINOPHEN\HYDROCODONE BITARTRATE [Concomitant]
     Active Substance: ACETAMINOPHEN\HYDROCODONE BITARTRATE
  41. LOMOTIL [Concomitant]
     Active Substance: ATROPINE SULFATE\DIPHENOXYLATE HYDROCHLORIDE
  42. MORPHINE SULFATE [Concomitant]
     Active Substance: MORPHINE SULFATE
  43. SALINE [Concomitant]
     Active Substance: SODIUM CHLORIDE
  44. CEFTRIAXONE [Concomitant]
     Active Substance: CEFTRIAXONE
  45. SODIUM BICARBONATE [Concomitant]
     Active Substance: SODIUM BICARBONATE
  46. CIPRO [Concomitant]
     Active Substance: CIPROFLOXACIN HYDROCHLORIDE
  47. HYDRALAZINE [Concomitant]
     Active Substance: HYDRALAZINE HYDROCHLORIDE
     Indication: Hypertension
  48. NAPROXEN [Concomitant]
     Active Substance: NAPROXEN
     Indication: Pain
     Dates: start: 2006
  49. AMOXICILLIN\CLAVULANATE POTASSIUM [Concomitant]
     Active Substance: AMOXICILLIN\CLAVULANATE POTASSIUM
     Indication: Infection
     Dates: start: 2006
  50. BENAZEPRIL [Concomitant]
     Active Substance: BENAZEPRIL HYDROCHLORIDE
     Indication: Blood pressure abnormal

REACTIONS (8)
  - Chronic obstructive pulmonary disease [Fatal]
  - Cardiac failure congestive [Fatal]
  - Renal failure [Fatal]
  - End stage renal disease [Unknown]
  - Chronic kidney disease [Unknown]
  - Acute kidney injury [Unknown]
  - Renal tubular necrosis [Unknown]
  - Metabolic acidosis [Unknown]

NARRATIVE: CASE EVENT DATE: 20120101
